FAERS Safety Report 13740630 (Version 4)
Quarter: 2017Q4

REPORT INFORMATION
  Report Type: Spontaneous
  Country: AT (occurrence: AT)
  Receive Date: 20170711
  Receipt Date: 20171227
  Transmission Date: 20180320
  Serious: Yes (Hospitalization, Other)
  Sender: FDA-Public Use
  Company Number: AT-PFIZER INC-2017297171

PATIENT
  Age: 34 Year
  Sex: Male

DRUGS (11)
  1. OLANZAPINE. [Suspect]
     Active Substance: OLANZAPINE
     Dosage: 5 MG, UNK
     Route: 048
     Dates: start: 20170127, end: 20170130
  2. GLADEM [Suspect]
     Active Substance: SERTRALINE HYDROCHLORIDE
     Dosage: 50-150 MG
     Route: 048
  3. GLADEM [Suspect]
     Active Substance: SERTRALINE HYDROCHLORIDE
     Dosage: 200 MG, UNK
     Route: 048
     Dates: start: 201512, end: 201601
  4. GLADEM [Suspect]
     Active Substance: SERTRALINE HYDROCHLORIDE
     Dosage: UNK
     Route: 048
     Dates: start: 201601
  5. LYRICA [Suspect]
     Active Substance: PREGABALIN
     Dosage: 1200 MG, UNK
     Route: 048
     Dates: start: 20170125
  6. OLANZAPINE. [Suspect]
     Active Substance: OLANZAPINE
     Dosage: 10 MG, UNK
     Route: 048
     Dates: start: 201604, end: 20170126
  7. QUETIAPINE FUMARATE. [Suspect]
     Active Substance: QUETIAPINE FUMARATE
     Dosage: 400 MG, UNK
     Route: 048
     Dates: start: 201604, end: 20170123
  8. OLANZAPINE. [Suspect]
     Active Substance: OLANZAPINE
     Dosage: 2.5 MG, UNK
     Route: 048
     Dates: start: 20170131
  9. QUETIAPINE FUMARATE. [Suspect]
     Active Substance: QUETIAPINE FUMARATE
     Dosage: 200 MG, UNK
     Route: 048
     Dates: start: 20170124
  10. LYRICA [Suspect]
     Active Substance: PREGABALIN
     Dosage: 900 MG, UNK
     Route: 048
     Dates: start: 20170124, end: 20170124
  11. LYRICA [Suspect]
     Active Substance: PREGABALIN
     Dosage: 600 MG, UNK
     Route: 048
     Dates: start: 201601, end: 20170123

REACTIONS (4)
  - Chronic tic disorder [Unknown]
  - Prescribed overdose [Unknown]
  - Condition aggravated [Unknown]
  - Weight increased [Not Recovered/Not Resolved]

NARRATIVE: CASE EVENT DATE: 2016
